FAERS Safety Report 5786781-3 (Version None)
Quarter: 2008Q2

REPORT INFORMATION
  Report Type: 
  Country: None (occurrence: None)
  Receive Date: 20080624
  Receipt Date: 20080617
  Transmission Date: 20081010
  Serious: Yes (Hospitalization)
  Sender: FDA-Public Use
  Company Number: US-AMGEN-US287901

PATIENT
  Sex: Female

DRUGS (7)
  1. ENBREL [Suspect]
     Indication: RHEUMATOID ARTHRITIS
     Route: 058
     Dates: start: 20021125, end: 20060809
  2. ENBREL [Suspect]
     Route: 058
     Dates: start: 20060809
  3. DURAGESIC-100 [Suspect]
     Route: 062
     Dates: start: 20040628, end: 20040721
  4. METHOTREXATE [Concomitant]
     Route: 065
     Dates: start: 20010424
  5. FOLIC ACID [Concomitant]
     Route: 065
     Dates: start: 20010424
  6. LEUCOVORIN CALCIUM [Concomitant]
     Route: 065
  7. PREDNISONE TAB [Concomitant]
     Route: 065

REACTIONS (1)
  - SYNCOPE VASOVAGAL [None]
